FAERS Safety Report 9192431 (Version 2)
Quarter: 2013Q2

REPORT INFORMATION
  Report Type: Spontaneous
  Country: US (occurrence: US)
  Receive Date: 20130327
  Receipt Date: 20130606
  Transmission Date: 20140414
  Serious: Yes (Hospitalization)
  Sender: FDA-Public Use
  Company Number: US-ELI_LILLY_AND_COMPANY-US201106006098

PATIENT
  Age: 90 Year
  Sex: Female

DRUGS (12)
  1. FORTEO [Suspect]
     Indication: OSTEOPOROSIS
     Dosage: 20 UG, QD
     Route: 058
     Dates: start: 201105
  2. FORTEO [Suspect]
     Dosage: 20 UG, QD
     Route: 058
  3. FORTEO [Suspect]
     Dosage: 20 UG, QD
     Route: 058
  4. FORTEO [Suspect]
     Dosage: 20 UG, QD
     Route: 058
  5. FORTEO [Suspect]
     Dosage: 20 UG, QD
     Route: 058
  6. FORTEO [Suspect]
     Dosage: 20 UG, QD
     Route: 058
  7. FORTEO [Suspect]
     Dosage: 20 UG, QD
     Route: 058
  8. FORTEO [Suspect]
     Dosage: 20 UG, QD
     Route: 058
  9. FORTEO [Suspect]
     Dosage: 20 UG, QD
     Route: 058
  10. LIPITOR [Concomitant]
  11. ASPIRIN [Concomitant]
  12. TOPROL [Concomitant]

REACTIONS (23)
  - Coronary artery disease [Recovered/Resolved]
  - Viral test positive [Unknown]
  - Dysstasia [Unknown]
  - Movement disorder [Not Recovered/Not Resolved]
  - Arthritis [Unknown]
  - Hypoacusis [Unknown]
  - Aphonia [Not Recovered/Not Resolved]
  - Malaise [Not Recovered/Not Resolved]
  - Back injury [Unknown]
  - Muscle disorder [Unknown]
  - Joint swelling [Unknown]
  - Pain in extremity [Unknown]
  - Contusion [Unknown]
  - Fall [Recovered/Resolved]
  - Vertigo [Unknown]
  - Blood pressure increased [Not Recovered/Not Resolved]
  - Dyspnoea [Not Recovered/Not Resolved]
  - Pain [Unknown]
  - Asthenia [Not Recovered/Not Resolved]
  - Injection site bruising [Unknown]
  - Injection site pain [Recovered/Resolved]
  - Incorrect dose administered [Recovered/Resolved]
  - Drug dose omission [Unknown]
